FAERS Safety Report 5845423-9 (Version None)
Quarter: 2008Q3

REPORT INFORMATION
  Report Type: 
  Country: None (occurrence: None)
  Receive Date: 20080814
  Receipt Date: 20080807
  Transmission Date: 20090109
  Serious: Yes (Hospitalization)
  Sender: FDA-Public Use
  Company Number: FR-BRISTOL-MYERS SQUIBB COMPANY-14293948

PATIENT
  Sex: Female

DRUGS (3)
  1. CORGARD [Suspect]
     Indication: HYPERTROPHIC CARDIOMYOPATHY
     Dates: start: 20070101, end: 20070101
  2. ASPIRIN [Suspect]
     Dosage: FORM = POWDER
  3. HEPARIN [Concomitant]
     Dates: start: 20070101, end: 20070101

REACTIONS (3)
  - FOETAL GROWTH RETARDATION [None]
  - OLIGOHYDRAMNIOS [None]
  - PREGNANCY [None]
